FAERS Safety Report 18441774 (Version 2)
Quarter: 2020Q4

REPORT INFORMATION
  Report Type: Report from Study
  Country: US (occurrence: US)
  Receive Date: 20201029
  Receipt Date: 20201125
  Transmission Date: 20210114
  Serious: No
  Sender: FDA-Public Use
  Company Number: US-BIOVITRUM-2020US4407

PATIENT
  Age: 35 Year
  Sex: Male

DRUGS (1)
  1. KINERET [Suspect]
     Active Substance: ANAKINRA
     Indication: JUVENILE IDIOPATHIC ARTHRITIS
     Dosage: 100MG/0.67ML
     Route: 058
     Dates: start: 20180719

REACTIONS (8)
  - Acne [Unknown]
  - Hypersensitivity [Unknown]
  - Pruritus [Unknown]
  - Off label use [Not Recovered/Not Resolved]
  - Erythema [Unknown]
  - Burning sensation [Unknown]
  - Intentional product misuse [Unknown]
  - Needle issue [Unknown]

NARRATIVE: CASE EVENT DATE: 20180719
